FAERS Safety Report 6001319-3 (Version None)
Quarter: 2008Q4

REPORT INFORMATION
  Report Type: 
  Country: None (occurrence: None)
  Receive Date: 20081215
  Receipt Date: 20081205
  Transmission Date: 20090506
  Serious: Yes (Other)
  Sender: FDA-Public Use
  Company Number: PHHY2008CH30953

PATIENT
  Sex: Male

DRUGS (2)
  1. ZOLEDRONIC ACID [Suspect]
     Indication: OSTEOPOROSIS
     Dosage: 5 MG
     Route: 042
     Dates: start: 20081203
  2. APROVEL [Concomitant]
     Indication: HYPERTENSION

REACTIONS (8)
  - EXTRASYSTOLES [None]
  - GAIT DISTURBANCE [None]
  - HYPOTENSION [None]
  - INFLUENZA LIKE ILLNESS [None]
  - JOINT EFFUSION [None]
  - LETHARGY [None]
  - MUSCULOSKELETAL PAIN [None]
  - PYREXIA [None]
